FAERS Safety Report 7953450-0 (Version None)
Quarter: 2011Q4

REPORT INFORMATION
  Report Type: 
  Country: None (occurrence: None)
  Receive Date: 20111202
  Receipt Date: 20111129
  Transmission Date: 20120403
  Serious: No
  Sender: FDA-Public Use
  Company Number: US-PFIZER INC-2011291102

PATIENT
  Sex: Female

DRUGS (8)
  1. ZOCOR [Interacting]
     Dosage: UNK
  2. LEXAPRO [Interacting]
     Dosage: UNK
  3. PRISTIQ [Interacting]
     Dosage: UNK
  4. XANAX [Interacting]
     Dosage: UNK
  5. ZYPREXA [Interacting]
     Dosage: UNK
  6. ATENOLOL [Interacting]
     Dosage: UNK
  7. CYMBALTA [Suspect]
     Dosage: UNK
  8. LEVOTHROID [Interacting]
     Dosage: UNK

REACTIONS (1)
  - WEIGHT INCREASED [None]
